FAERS Safety Report 20670560 (Version 1)
Quarter: 2022Q2

REPORT INFORMATION
  Report Type: Spontaneous
  Country: PL (occurrence: PL)
  Receive Date: 20220404
  Receipt Date: 20220404
  Transmission Date: 20220721
  Serious: Yes (Life-Threatening, Other)
  Sender: FDA-Public Use
  Company Number: PL-NOVARTISPH-NVSC2022PL076288

PATIENT
  Age: 62 Year
  Sex: Female

DRUGS (1)
  1. AMOXICILLIN\CLAVULANATE POTASSIUM [Suspect]
     Active Substance: AMOXICILLIN\CLAVULANATE POTASSIUM
     Indication: Pharyngitis bacterial
     Dosage: BID (TWICE IN THE MORNING AND IN THE EVENING)
     Route: 065

REACTIONS (7)
  - Feeling abnormal [Unknown]
  - Insomnia [Unknown]
  - Hypertension [Unknown]
  - Headache [Unknown]
  - Dry mouth [Unknown]
  - Vomiting [Unknown]
  - Hypotension [Unknown]
